FAERS Safety Report 23365396 (Version 2)
Quarter: 2024Q1

REPORT INFORMATION
  Report Type: Spontaneous
  Country: GB (occurrence: GB)
  Receive Date: 20240104
  Receipt Date: 20240301
  Transmission Date: 20240410
  Serious: Yes (Hospitalization, Other)
  Sender: FDA-Public Use
  Company Number: GB-ABBVIE-5541207

PATIENT
  Age: 63 Year
  Sex: Female

DRUGS (21)
  1. CLOPIDOGREL [Suspect]
     Active Substance: CLOPIDOGREL BISULFATE
     Indication: Basal ganglia infarction
     Dosage: 75 MILLIGRAM, ONCE A DAY
     Route: 050
     Dates: start: 2023
  2. CARBAZOCHROME [Suspect]
     Active Substance: CARBAZOCHROME
     Indication: Product used for unknown indication
     Dosage: UNK
     Route: 050
  3. CARBIDOPA\LEVODOPA [Suspect]
     Active Substance: CARBIDOPA\LEVODOPA
     Indication: Parkinson^s disease
     Dosage: 20MGS/5MGS
  4. CARBIDOPA\LEVODOPA [Suspect]
     Active Substance: CARBIDOPA\LEVODOPA
     Dosage: UNK, PUMP 5.7 MLS INCREASED DOSE
     Route: 050
  5. CARBIDOPA\LEVODOPA [Suspect]
     Active Substance: CARBIDOPA\LEVODOPA
     Dosage: UNK, PUMP 5.5 MLS
     Route: 050
  6. LANSOPRAZOLE [Suspect]
     Active Substance: LANSOPRAZOLE
     Indication: Product used for unknown indication
     Dosage: 30 MILLIGRAM, ONCE A DAY
     Route: 050
     Dates: start: 2023
  7. AMANTADINE [Concomitant]
     Active Substance: AMANTADINE
     Indication: Product used for unknown indication
     Dosage: 200MG, 100 MG200 MG AT 8 AM, 100 MG AT 12:30; ;
     Route: 065
  8. CITALOPRAM [Concomitant]
     Active Substance: CITALOPRAM HYDROBROMIDE
     Indication: Product used for unknown indication
     Dosage: 30 MILLIGRAM, ONCE A DAY
     Route: 065
  9. CARBIDOPA\LEVODOPA [Concomitant]
     Active Substance: CARBIDOPA\LEVODOPA
     Indication: Product used for unknown indication
     Dosage: 50/200 MG MR;
     Route: 065
  10. CYANOCOBALAMIN [Concomitant]
     Active Substance: CYANOCOBALAMIN
     Indication: Product used for unknown indication
     Dosage: 150 MICROGRAM, ONCE A DAY
     Route: 065
  11. CHOLECALCIFEROL [Concomitant]
     Active Substance: CHOLECALCIFEROL
     Indication: Product used for unknown indication
     Dosage: 1000 DOSAGE FORM, ONCE A DAY
     Route: 065
  12. MELATONIN [Concomitant]
     Active Substance: MELATONIN
     Indication: Product used for unknown indication
     Dosage: DOSE REDUCED AT NIGHTS, 3 TABLETREDUCED MELATONIN FROM THREE TO TABLETS AT NIGHT; ;
     Route: 065
  13. MELATONIN [Concomitant]
     Active Substance: MELATONIN
     Dosage: 4 MILLIGRAM, ONCE A DAY
     Route: 065
  14. MOVICOL [Concomitant]
     Active Substance: POLYETHYLENE GLYCOL 3350\POTASSIUM CHLORIDE\SODIUM BICARBONATE\SODIUM CHLORIDE
     Indication: Product used for unknown indication
     Dosage: ONE TO TWO SACHETS;
     Route: 065
  15. OMEPRAZOLE [Concomitant]
     Active Substance: OMEPRAZOLE
     Indication: Product used for unknown indication
     Dosage: UNK
     Route: 065
     Dates: end: 2023
  16. ACETAMINOPHEN [Concomitant]
     Active Substance: ACETAMINOPHEN
     Indication: Product used for unknown indication
     Dosage: UNK, AS NECESSARY
     Route: 065
  17. PRAMIPEXOLE [Concomitant]
     Active Substance: PRAMIPEXOLE\PRAMIPEXOLE DIHYDROCHLORIDE
     Indication: Hallucination
     Dosage: 0.26 MICROGRAM, ONCE A DAY
     Route: 065
     Dates: start: 2023
  18. PRAMIPEXOLE [Concomitant]
     Active Substance: PRAMIPEXOLE\PRAMIPEXOLE DIHYDROCHLORIDE
     Dosage: 0.52 MICROGRAM, ONCE A DAY
     Route: 065
     Dates: start: 2023
  19. PREGABALIN [Concomitant]
     Active Substance: PREGABALIN
     Indication: Product used for unknown indication
     Dosage: 75 MILLIGRAM, TWO TIMES A DAY
     Route: 065
  20. RASAGILINE [Concomitant]
     Active Substance: RASAGILINE\RASAGILINE MESYLATE
     Indication: Product used for unknown indication
     Dosage: 1 MILLIGRAM, ONCE A DAY
     Route: 065
  21. RIVASTIGMINE [Concomitant]
     Active Substance: RIVASTIGMINE
     Indication: Product used for unknown indication
     Dosage: UNK
     Route: 065

REACTIONS (18)
  - Peroneal nerve palsy [Unknown]
  - Dysphagia [Unknown]
  - On and off phenomenon [Unknown]
  - Fall [Unknown]
  - Somnambulism [Unknown]
  - Lumbar radiculopathy [Unknown]
  - Basal ganglia infarction [Unknown]
  - Motor dysfunction [Unknown]
  - Hypophagia [Unknown]
  - Dyskinesia [Unknown]
  - Parkinson^s disease [Unknown]
  - Hallucination, visual [Not Recovered/Not Resolved]
  - Unevaluable event [Unknown]
  - Wheelchair user [Unknown]
  - Drug tolerance [Unknown]
  - Feeding disorder [Unknown]
  - Food intolerance [Not Recovered/Not Resolved]
  - Device issue [Not Recovered/Not Resolved]

NARRATIVE: CASE EVENT DATE: 20230101
